FAERS Safety Report 5422044-3 (Version None)
Quarter: 2007Q3

REPORT INFORMATION
  Report Type: 
  Country: None (occurrence: None)
  Receive Date: 20070820
  Receipt Date: 20070806
  Transmission Date: 20080115
  Serious: Yes (Other)
  Sender: FDA-Public Use
  Company Number: RENA-12248

PATIENT
  Sex: Female

DRUGS (1)
  1. RENAGEL [Suspect]
     Indication: HYPERPHOSPHATAEMIA
     Dosage: 4.8 G TID PO
     Route: 048
     Dates: start: 20020501, end: 20050101

REACTIONS (3)
  - BLOOD PARATHYROID HORMONE INCREASED [None]
  - DRY THROAT [None]
  - FOREIGN BODY TRAUMA [None]
